FAERS Safety Report 4343963-5 (Version None)
Quarter: 2004Q2

REPORT INFORMATION
  Report Type: 
  Country: None (occurrence: None)
  Receive Date: 20040422
  Receipt Date: 20040321
  Transmission Date: 20050107
  Serious: Yes (Death)
  Sender: FDA-Public Use
  Company Number: DE-ROCHE-362272

PATIENT
  Age: 24 Year
  Sex: Male

DRUGS (5)
  1. TAMIFLU [Suspect]
     Indication: INFLUENZA
     Dosage: DOSAGE REGIMEN REPORTED AS 150 MG.
     Route: 048
     Dates: start: 20040315
  2. MERONEM [Concomitant]
     Dosage: DOSAGE REGIMEN REPORTED AS 1 GRAM.
  3. NOREPINEPHRINE BITARTRATE [Concomitant]
  4. SUFENTA [Concomitant]
  5. MIDAZOLAM HCL [Concomitant]
     Dosage: DOSAGE REGIMEN REPORTED AS 90 MG PER 3ML/HR.

REACTIONS (9)
  - DEPRESSED LEVEL OF CONSCIOUSNESS [None]
  - GENERAL PHYSICAL HEALTH DETERIORATION [None]
  - HAEMATURIA [None]
  - HAEMOGLOBIN DECREASED [None]
  - HAEMOLYSIS [None]
  - JAUNDICE [None]
  - PNEUMOTHORAX [None]
  - POSTOPERATIVE INFECTION [None]
  - SEPSIS [None]
